FAERS Safety Report 6464088-9 (Version None)
Quarter: 2009Q4

REPORT INFORMATION
  Report Type: 
  Country: None (occurrence: None)
  Receive Date: 20091130
  Receipt Date: 20091130
  Transmission Date: 20100525
  Serious: Yes (Other)
  Sender: FDA-Public Use
  Company Number: None

PATIENT
  Age: 46 Year
  Sex: Male
  Weight: 200 kg

DRUGS (1)
  1. DIETHYLPROPION 75 MG [Suspect]
     Indication: APPETITE DISORDER
     Dosage: 75 MG DAILY PO
     Route: 048

REACTIONS (10)
  - ATRIAL FIBRILLATION [None]
  - DILATATION ATRIAL [None]
  - EJECTION FRACTION DECREASED [None]
  - HYPERTENSION [None]
  - MITRAL VALVE INCOMPETENCE [None]
  - PULMONARY HYPERTENSION [None]
  - PULMONARY OEDEMA [None]
  - RENAL FAILURE ACUTE [None]
  - RESPIRATORY FAILURE [None]
  - TRICUSPID VALVE INCOMPETENCE [None]
